FAERS Safety Report 9606895 (Version 1)
Quarter: 2013Q4

REPORT INFORMATION
  Report Type: Spontaneous
  Country: US (occurrence: US)
  Receive Date: 20131008
  Receipt Date: 20131008
  Transmission Date: 20140711
  Serious: No
  Sender: FDA-Public Use
  Company Number: US-AMGEN-USASP2013068395

PATIENT
  Age: 66 Year
  Sex: Female

DRUGS (6)
  1. PROLIA [Suspect]
     Indication: OSTEOPOROSIS POSTMENOPAUSAL
     Dosage: UNK
     Route: 065
     Dates: start: 20130410
  2. LEVOTHYROXINE                      /00068002/ [Concomitant]
     Dosage: 75 MUG, UNK
     Route: 065
  3. CALCIUM [Concomitant]
     Dosage: UNK
     Route: 065
  4. VITAMIN D                          /00107901/ [Concomitant]
     Dosage: UNK
     Route: 065
  5. MULTIVITAMIN                       /00097801/ [Concomitant]
     Dosage: UNK
     Route: 065
  6. FISH OIL [Concomitant]
     Dosage: UNK
     Route: 065

REACTIONS (5)
  - Mobility decreased [Unknown]
  - Groin pain [Unknown]
  - Arthralgia [Unknown]
  - Back pain [Unknown]
  - Pain in extremity [Unknown]
